FAERS Safety Report 18581628 (Version 2)
Quarter: 2020Q4

REPORT INFORMATION
  Report Type: Report from Study
  Country: CN (occurrence: CN)
  Receive Date: 20201204
  Receipt Date: 20201217
  Transmission Date: 20210114
  Serious: Yes (Hospitalization, Other)
  Sender: FDA-Public Use
  Company Number: CN-ASTRAZENECA-2020SF61224

PATIENT
  Age: 20271 Day
  Sex: Male
  Weight: 95 kg

DRUGS (6)
  1. MECOBALAMIN [Concomitant]
     Active Substance: METHYLCOBALAMIN
     Dosage: TABLETS, THREE TIMES A DAY
  2. ATORVASTATIN [Concomitant]
     Active Substance: ATORVASTATIN
     Dosage: ONE TABLET A DAY
  3. RIVAROXABAN [Concomitant]
     Active Substance: RIVAROXABAN
  4. TAGRISSO [Suspect]
     Active Substance: OSIMERTINIB
     Indication: NON-SMALL CELL LUNG CANCER
     Dosage: 80.0MG UNKNOWN
     Route: 048
     Dates: start: 20200417
  5. CLARITYNE [Concomitant]
     Active Substance: LORATADINE
  6. PENTOXIFYLLINE. [Concomitant]
     Active Substance: PENTOXIFYLLINE

REACTIONS (6)
  - Product dose omission issue [Unknown]
  - Thrombosis [Unknown]
  - Hypoaesthesia [Unknown]
  - Mass [Unknown]
  - Peripheral coldness [Not Recovered/Not Resolved]
  - Hypersensitivity [Unknown]
